FAERS Safety Report 5445640-6 (Version None)
Quarter: 2007Q3

REPORT INFORMATION
  Report Type: 
  Country: None (occurrence: None)
  Receive Date: 20070906
  Receipt Date: 20070828
  Transmission Date: 20080115
  Serious: Yes (Other)
  Sender: FDA-Public Use
  Company Number: US-MERCK-0708USA05219

PATIENT
  Age: 74 Year
  Sex: Female

DRUGS (2)
  1. FOSAMAX [Suspect]
     Indication: OSTEOPOROSIS
     Route: 048
     Dates: end: 20070801
  2. ANALGESIC OR ANESTHETIC (UNSPECIFIED) [Concomitant]
     Indication: PAIN
     Route: 065

REACTIONS (2)
  - DENTAL CARIES [None]
  - NEOPLASM MALIGNANT [None]
